FAERS Safety Report 7733655-4 (Version None)
Quarter: 2011Q3

REPORT INFORMATION
  Report Type: 
  Country: None (occurrence: None)
  Receive Date: 20110907
  Receipt Date: 20110826
  Transmission Date: 20111222
  Serious: Yes (Hospitalization)
  Sender: FDA-Public Use
  Company Number: CA-UCBSA-040193

PATIENT
  Sex: Female
  Weight: 117.9 kg

DRUGS (9)
  1. CIMZIA [Suspect]
     Indication: RHEUMATOID ARTHRITIS
     Dosage: PREVIOUS DOSE: 400 MG FROM 08/DEC/2010 TO 05/JAN/2011 EVERY 2 WEEKS
     Route: 058
     Dates: start: 20110119
  2. LISINOPRIL [Concomitant]
     Indication: CARDIAC DISORDER
  3. ATENOLOL [Concomitant]
     Indication: CARDIAC DISORDER
  4. NEXIUM [Concomitant]
  5. TYLENOL W/ CODEINE [Concomitant]
     Indication: RHEUMATOID ARTHRITIS
  6. MELOXICAM [Concomitant]
     Indication: PAIN
  7. MELOXICAM [Concomitant]
     Indication: RHEUMATOID ARTHRITIS
  8. TYLENOL W/ CODEINE [Concomitant]
     Indication: PAIN
  9. CREAM FOR PSORIASIS [Concomitant]
     Indication: PSORIASIS

REACTIONS (2)
  - URINARY TRACT INFECTION [None]
  - BACTERIAL INFECTION [None]
